FAERS Safety Report 15679546 (Version 1)
Quarter: 2018Q4

REPORT INFORMATION
  Report Type: Spontaneous
  Country: US (occurrence: US)
  Receive Date: 20181203
  Receipt Date: 20181203
  Transmission Date: 20190205
  Serious: No
  Sender: FDA-Public Use
  Company Number: US-TEVA-2018-US-978005

PATIENT
  Sex: Male

DRUGS (1)
  1. TESTOSTERONE. [Suspect]
     Active Substance: TESTOSTERONE
     Indication: HORMONE LEVEL ABNORMAL
     Dates: start: 2018

REACTIONS (4)
  - Drug ineffective [Unknown]
  - Underdose [Unknown]
  - Product quality issue [Unknown]
  - Product deposit [Unknown]

NARRATIVE: CASE EVENT DATE: 2018
